FAERS Safety Report 8215382-2 (Version None)
Quarter: 2012Q1

REPORT INFORMATION
  Report Type: 
  Country: None (occurrence: None)
  Receive Date: 20120316
  Receipt Date: 20120309
  Transmission Date: 20120608
  Serious: Yes (Hospitalization)
  Sender: FDA-Public Use
  Company Number: US-MILLENNIUM PHARMACEUTICALS, INC.-2012-00975

PATIENT
  Age: 20 Year
  Sex: Female
  Weight: 74.8 kg

DRUGS (11)
  1. CYTARABINE [Suspect]
     Indication: B PRECURSOR TYPE ACUTE LEUKAEMIA
     Dosage: 30 MG, CYCLIC
     Route: 037
     Dates: start: 20120116, end: 20120227
  2. DOXORUBICIN HCL [Suspect]
     Indication: B PRECURSOR TYPE ACUTE LEUKAEMIA
     Dosage: 60 MG/M2, CYCLIC
     Route: 042
     Dates: start: 20120116, end: 20120117
  3. METHOTREXATE [Suspect]
     Dosage: 4500 MG/M2, UNK
  4. PREDNISONE TAB [Suspect]
     Indication: B PRECURSOR TYPE ACUTE LEUKAEMIA
     Dosage: 20 MG/M2, CYCLIC
     Route: 048
     Dates: start: 20120116, end: 20120214
  5. ETOPOSIDE [Suspect]
     Indication: B PRECURSOR TYPE ACUTE LEUKAEMIA
     Dosage: 100 MG/M2, CYCLIC
     Route: 042
     Dates: start: 20120224, end: 20120228
  6. HYDROCORTISONE [Suspect]
     Indication: B PRECURSOR TYPE ACUTE LEUKAEMIA
     Dosage: 15 MG, CYCLIC
     Dates: start: 20120116, end: 20120227
  7. METHOTREXATE [Suspect]
     Indication: B PRECURSOR TYPE ACUTE LEUKAEMIA
     Dosage: 500 MG/M2, CYCLIC
     Route: 042
     Dates: start: 20120116, end: 20120224
  8. PEGASPARGASE [Suspect]
     Indication: B PRECURSOR TYPE ACUTE LEUKAEMIA
     Dosage: 2500 UNK, CYCLIC
     Dates: start: 20120116, end: 20120207
  9. CYCLOPHOSPHAMIDE [Suspect]
     Indication: B PRECURSOR TYPE ACUTE LEUKAEMIA
     Dosage: 440 MG/M2, CYCLIC
     Route: 042
     Dates: start: 20120224, end: 20120228
  10. VELCADE [Suspect]
     Indication: B PRECURSOR TYPE ACUTE LEUKAEMIA
     Dosage: 1.3 MG/M2, CYCLIC
     Route: 040
     Dates: start: 20120116, end: 20120302
  11. VINCRISTINE [Suspect]
     Indication: B PRECURSOR TYPE ACUTE LEUKAEMIA
     Dosage: 1.5 MG/M2, CYCLIC
     Route: 040
     Dates: start: 20120116, end: 20120117

REACTIONS (16)
  - ARTHRALGIA [None]
  - COLITIS [None]
  - HELICOBACTER INFECTION [None]
  - OESOPHAGITIS [None]
  - BLOOD CULTURE POSITIVE [None]
  - ARTHRITIS INFECTIVE [None]
  - OROPHARYNGEAL PAIN [None]
  - PHARYNGITIS [None]
  - DECREASED APPETITE [None]
  - HYPOXIA [None]
  - SINUSITIS [None]
  - CHEST PAIN [None]
  - CULTURE STOOL POSITIVE [None]
  - CHOLECYSTITIS [None]
  - SLEEP APNOEA SYNDROME [None]
  - JOINT EFFUSION [None]
